FAERS Safety Report 24901588 (Version 4)
Quarter: 2025Q1

REPORT INFORMATION
  Report Type: Spontaneous
  Country: US (occurrence: US)
  Receive Date: 20250129
  Receipt Date: 20250322
  Transmission Date: 20250408
  Serious: Yes (Hospitalization, Other)
  Sender: SANOFI AVENTIS
  Company Number: US-SA-2025SA027349

PATIENT
  Age: 88 Year
  Sex: Female
  Weight: 82.55 kg

DRUGS (18)
  1. DUPIXENT [Suspect]
     Active Substance: DUPILUMAB
     Indication: Asthma
     Dosage: 300 MG, QOW
     Route: 065
  2. IPRATROPIUM BROMIDE AND ALBUTEROL SULFATE [Concomitant]
     Active Substance: ALBUTEROL SULFATE\IPRATROPIUM BROMIDE
  3. PREDNISONE [Concomitant]
     Active Substance: PREDNISONE
  4. AMOXICILLIN\CLAVULANATE POTASSIUM [Concomitant]
     Active Substance: AMOXICILLIN\CLAVULANATE POTASSIUM
  5. SIMVASTATIN [Concomitant]
     Active Substance: SIMVASTATIN
  6. SYNTHROID [Concomitant]
     Active Substance: LEVOTHYROXINE SODIUM
  7. HYDROCHLOROTHIAZIDE [Concomitant]
     Active Substance: HYDROCHLOROTHIAZIDE
  8. MONTELUKAST SODIUM [Concomitant]
     Active Substance: MONTELUKAST SODIUM
  9. ZYRTEC [Concomitant]
     Active Substance: CETIRIZINE HYDROCHLORIDE
  10. POTASSIUM CHLORIDE [Concomitant]
     Active Substance: POTASSIUM CHLORIDE
  11. ALBUTEROL SULFATE [Concomitant]
     Active Substance: ALBUTEROL SULFATE
  12. FLONASE ALLERGY RELIEF [Concomitant]
     Active Substance: FLUTICASONE PROPIONATE
  13. SPIRIVA RESPIMAT [Concomitant]
     Active Substance: TIOTROPIUM BROMIDE
  14. AZITHROMYCIN [Concomitant]
     Active Substance: AZITHROMYCIN
  15. ADVAIR HFA [Concomitant]
     Active Substance: FLUTICASONE PROPIONATE\SALMETEROL XINAFOATE
  16. VITAMIN C [Concomitant]
     Active Substance: ASCORBIC ACID
  17. GLUCOSAMINE SULFATE [Concomitant]
     Active Substance: GLUCOSAMINE SULFATE
  18. CALCIUM [Concomitant]
     Active Substance: CALCIUM

REACTIONS (10)
  - Pneumonia [Recovering/Resolving]
  - Malaise [Unknown]
  - Influenza like illness [Unknown]
  - Pyrexia [Unknown]
  - Cough [Unknown]
  - Bone pain [Unknown]
  - Fatigue [Unknown]
  - Vision blurred [Unknown]
  - Dry eye [Unknown]
  - Eye irritation [Unknown]

NARRATIVE: CASE EVENT DATE: 20250101
